FAERS Safety Report 6604079-8 (Version None)
Quarter: 2010Q1

REPORT INFORMATION
  Report Type: 
  Country: None (occurrence: None)
  Receive Date: 20100226
  Receipt Date: 20090511
  Transmission Date: 20100710
  Serious: No
  Sender: FDA-Public Use
  Company Number: A0783537A

PATIENT
  Age: 16 Year
  Sex: Male

DRUGS (3)
  1. LAMICTAL CD [Suspect]
     Indication: DEPRESSION
     Dosage: 100MG PER DAY
     Route: 048
     Dates: start: 20090416
  2. MINOCYCLINE HCL [Concomitant]
     Dosage: 100MG TWICE PER DAY
  3. ABILIFY [Concomitant]
     Dosage: 20MG PER DAY

REACTIONS (1)
  - RASH PRURITIC [None]
